FAERS Safety Report 19265707 (Version 1)
Quarter: 2021Q2

REPORT INFORMATION
  Report Type: Spontaneous
  Country: US (occurrence: US)
  Receive Date: 20210517
  Receipt Date: 20210517
  Transmission Date: 20210717
  Serious: Yes (Disabling, Other)
  Sender: FDA-Public Use
  Company Number: US-SUN PHARMACEUTICAL INDUSTRIES LTD-2021R1-296824

PATIENT
  Age: 13 Year
  Sex: Female

DRUGS (1)
  1. CARBIDOPA / LEVODOPA [Suspect]
     Active Substance: CARBIDOPA\LEVODOPA
     Indication: PARKINSONISM
     Dosage: 10/ 100 MG, TID
     Route: 065

REACTIONS (2)
  - Dizziness postural [Recovering/Resolving]
  - Dyskinesia [Recovering/Resolving]
